FAERS Safety Report 6123250-5 (Version None)
Quarter: 2009Q1

REPORT INFORMATION
  Report Type: 
  Country: None (occurrence: None)
  Receive Date: 20090318
  Receipt Date: 20080229
  Transmission Date: 20090719
  Serious: No
  Sender: FDA-Public Use
  Company Number: US-ABBOTT-08P-163-0441119-00

PATIENT
  Sex: Female
  Weight: 59.02 kg

DRUGS (3)
  1. BIAXIN XL [Suspect]
     Indication: BRONCHITIS
     Route: 048
     Dates: start: 20071101, end: 20071101
  2. AMLODIPINE [Concomitant]
     Indication: BLOOD PRESSURE
  3. M.V.I. [Concomitant]
     Indication: DRUG USE FOR UNKNOWN INDICATION

REACTIONS (1)
  - HAIR COLOUR CHANGES [None]
